FAERS Safety Report 7092714-2 (Version None)
Quarter: 2010Q4

REPORT INFORMATION
  Report Type: 
  Country: None (occurrence: None)
  Receive Date: 20101101
  Receipt Date: 20101028
  Transmission Date: 20110411
  Serious: Yes (Life-Threatening, Hospitalization, Other)
  Sender: FDA-Public Use
  Company Number: 2010SP054770

PATIENT
  Age: 49 Year
  Sex: Female

DRUGS (4)
  1. TETRAMIDE (MIANSERIN HYDROCHLORIDE /00390602/) [Suspect]
     Indication: PRODUCT USED FOR UNKNOWN INDICATION
     Dosage: 40 MG;QD;PO ; 1770 MG;ONCE;PO
     Route: 048
     Dates: start: 20101007, end: 20101007
  2. MIRTAZAPINE [Suspect]
     Indication: PRODUCT USED FOR UNKNOWN INDICATION
     Dosage: 30 MG;QD;PO ; 750 MG;QD;PO
     Route: 048
     Dates: start: 20101007, end: 20101007
  3. AMOBAN (ZOPICLONE) [Suspect]
     Indication: PRODUCT USED FOR UNKNOWN INDICATION
     Dosage: 10 MG;QD;PO ; 520 MG;ONCE;PO
     Route: 048
     Dates: start: 20101007, end: 20101007
  4. NITRAZEPAM [Suspect]
     Indication: PRODUCT USED FOR UNKNOWN INDICATION
     Dosage: 5 MG;QD;PO ; 280 MG;ONCE;PO
     Route: 048
     Dates: start: 20101007, end: 20101007

REACTIONS (4)
  - COMA [None]
  - INCORRECT DOSE ADMINISTERED [None]
  - SUICIDE ATTEMPT [None]
  - VOMITING [None]
